FAERS Safety Report 5000283-3 (Version None)
Quarter: 2006Q2

REPORT INFORMATION
  Report Type: 
  Country: None (occurrence: None)
  Receive Date: 20060511
  Receipt Date: 20060410
  Transmission Date: 20061013
  Serious: Yes (Disabling)
  Sender: FDA-Public Use
  Company Number: GB-MERCK-0604GBR00067

PATIENT
  Age: 4 Year
  Sex: Female
  Weight: 16 kg

DRUGS (4)
  1. SINGULAIR [Suspect]
     Indication: ASTHMA
     Route: 048
     Dates: start: 20060321, end: 20060405
  2. ALBUTEROL [Concomitant]
     Indication: ASTHMA
     Route: 055
     Dates: start: 20060125
  3. FLUTICASONE PROPIONATE [Concomitant]
     Indication: ASTHMA
     Route: 055
  4. ACETAMINOPHEN [Concomitant]
     Route: 048
     Dates: start: 20060201

REACTIONS (5)
  - FORMICATION [None]
  - HALLUCINATION [None]
  - SCREAMING [None]
  - SLEEP DISORDER [None]
  - SLEEP TERROR [None]
